FAERS Safety Report 5066855-5 (Version None)
Quarter: 2006Q3

REPORT INFORMATION
  Report Type: 
  Country: None (occurrence: None)
  Receive Date: 20060726
  Receipt Date: 20060710
  Transmission Date: 20061208
  Serious: Yes (Hospitalization)
  Sender: FDA-Public Use
  Company Number: 2006EU002050

PATIENT
  Age: 63 Year
  Sex: Male

DRUGS (10)
  1. PROGRAF [Suspect]
     Indication: LIVER TRANSPLANT
     Dosage: 2 MG, BID, ORAL
     Route: 048
     Dates: start: 20060710
  2. CELLCEPT [Concomitant]
  3. HYDROCORTISONE (HYDROCORTISONE HYDROGEN SUCCINATE) [Concomitant]
  4. CIFLOX (CIPROFLOXACIN HYDROCHLORIDE) [Concomitant]
  5. INVANZ (ERTAPENEM SODIUM) [Concomitant]
  6. LEVOTHYROXINE SODIUM [Concomitant]
  7. LOVENOX [Concomitant]
  8. ASPIRIN [Concomitant]
  9. ATENOLOL [Concomitant]
  10. OMEPRAZOLE [Concomitant]

REACTIONS (9)
  - AGITATION [None]
  - CONFUSIONAL STATE [None]
  - DRUG ADMINISTRATION ERROR [None]
  - EMOTIONAL DISORDER [None]
  - FEELING ABNORMAL [None]
  - LOGORRHOEA [None]
  - MENTAL DISORDER [None]
  - NERVOUS SYSTEM DISORDER [None]
  - TREATMENT NONCOMPLIANCE [None]
